FAERS Safety Report 12894428 (Version 4)
Quarter: 2017Q2

REPORT INFORMATION
  Report Type: Spontaneous
  Country: US (occurrence: US)
  Receive Date: 20161028
  Receipt Date: 20170411
  Transmission Date: 20170830
  Serious: Yes (Death, Hospitalization)
  Sender: FDA-Public Use
  Company Number: US-JNJFOC-20161021700

PATIENT
  Sex: Female
  Weight: 32 kg

DRUGS (3)
  1. XARELTO [Suspect]
     Active Substance: RIVAROXABAN
     Indication: THROMBOSIS
     Dosage: 0.94 MG / KILOGRAMS
     Route: 048
     Dates: start: 20151112
  2. OXYCONTIN [Concomitant]
     Active Substance: OXYCODONE HYDROCHLORIDE
     Indication: PAIN
     Route: 065
  3. XARELTO [Suspect]
     Active Substance: RIVAROXABAN
     Indication: THROMBOSIS
     Route: 048
     Dates: start: 201406, end: 201501

REACTIONS (7)
  - Asthenia [Unknown]
  - Cerebral haemorrhage [Fatal]
  - Gait disturbance [Unknown]
  - Product contamination [Unknown]
  - Haematemesis [Unknown]
  - Haemorrhage [Fatal]
  - Headache [Unknown]

NARRATIVE: CASE EVENT DATE: 201511
